FAERS Safety Report 6123000-2 (Version None)
Quarter: 2009Q1

REPORT INFORMATION
  Report Type: 
  Country: None (occurrence: None)
  Receive Date: 20090318
  Receipt Date: 20090311
  Transmission Date: 20090719
  Serious: Yes (Hospitalization, Disabling, Other)
  Sender: FDA-Public Use
  Company Number: US-MERCK-0706USA00827

PATIENT
  Age: 49 Year
  Sex: Female

DRUGS (1)
  1. FOSAMAX [Suspect]
     Indication: OSTEOPOROSIS
     Route: 048
     Dates: start: 20000101, end: 20060101

REACTIONS (7)
  - ANXIETY [None]
  - CARDIAC DISORDER [None]
  - DEPRESSION [None]
  - GASTROINTESTINAL DISORDER [None]
  - JAW DISORDER [None]
  - ORAL PAIN [None]
  - OSTEONECROSIS [None]
